FAERS Safety Report 8576720-4 (Version None)
Quarter: 2012Q3

REPORT INFORMATION
  Report Type: 
  Country: None (occurrence: None)
  Receive Date: 20120807
  Receipt Date: 20120731
  Transmission Date: 20120928
  Serious: Yes (Hospitalization)
  Sender: FDA-Public Use
  Company Number: FR-GLAXOSMITHKLINE-B0819432A

PATIENT
  Sex: Male

DRUGS (8)
  1. ATORVASTATIN [Concomitant]
     Dosage: 10MG PER DAY
     Route: 065
  2. LAMICTAL [Suspect]
     Indication: PRODUCT USED FOR UNKNOWN INDICATION
     Route: 048
     Dates: start: 20101201, end: 20120523
  3. AVODART [Concomitant]
     Dosage: 1UNIT PER DAY
     Route: 065
  4. ASPIRIN [Concomitant]
     Dosage: 160MG PER DAY
     Route: 065
  5. SILODOSIN [Concomitant]
     Dosage: 8MG PER DAY
     Route: 065
  6. VASTAREL [Concomitant]
     Dosage: 35MG TWICE PER DAY
     Route: 065
  7. ONGLYZA [Suspect]
     Indication: PRODUCT USED FOR UNKNOWN INDICATION
     Dosage: 1UNIT PER DAY
     Route: 048
     Dates: start: 20110901
  8. IMOVANE [Concomitant]
     Dosage: 7.5MG PER DAY
     Route: 065

REACTIONS (10)
  - ERYTHEMA [None]
  - ACTINIC KERATOSIS [None]
  - SKIN EROSION [None]
  - FUNGAL SKIN INFECTION [None]
  - PRURITUS [None]
  - MUCOSAL EROSION [None]
  - MILIA [None]
  - GENITAL INFECTION FUNGAL [None]
  - PEMPHIGOID [None]
  - BLISTER [None]
